FAERS Safety Report 19920620 (Version 4)
Quarter: 2022Q3

REPORT INFORMATION
  Report Type: Report from Study
  Country: AR (occurrence: AR)
  Receive Date: 20211005
  Receipt Date: 20220707
  Transmission Date: 20221027
  Serious: Yes (Other)
  Sender: FDA-Public Use
  Company Number: AR-NOVARTISPH-NVSC2019AR026698

PATIENT
  Age: 51 Year
  Sex: Male
  Weight: 123 kg

DRUGS (1)
  1. COSENTYX [Suspect]
     Active Substance: SECUKINUMAB
     Indication: Psoriasis
     Dosage: 300 MG, QMO
     Route: 058
     Dates: start: 20190120

REACTIONS (21)
  - Suicidal ideation [Unknown]
  - Pigmentation disorder [Unknown]
  - Injury [Not Recovered/Not Resolved]
  - Stress [Unknown]
  - Obesity [Unknown]
  - Tooth disorder [Not Recovered/Not Resolved]
  - Dyspepsia [Unknown]
  - Vaccination site reaction [Unknown]
  - Weight increased [Unknown]
  - Dental caries [Unknown]
  - Abdominal pain [Unknown]
  - Blood cholesterol increased [Unknown]
  - Tooth impacted [Unknown]
  - Dizziness [Unknown]
  - Condition aggravated [Not Recovered/Not Resolved]
  - Weight decreased [Unknown]
  - Memory impairment [Unknown]
  - Furuncle [Unknown]
  - Psoriasis [Unknown]
  - Pruritus [Unknown]
  - Drug ineffective [Unknown]

NARRATIVE: CASE EVENT DATE: 20200201
